FAERS Safety Report 15750632 (Version 1)
Quarter: 2018Q4

REPORT INFORMATION
  Report Type: Report from Study
  Country: GR (occurrence: GR)
  Receive Date: 20181221
  Receipt Date: 20181221
  Transmission Date: 20190205
  Serious: Yes (Death)
  Sender: FDA-Public Use
  Company Number: GR-ELI_LILLY_AND_COMPANY-GR201812009603

PATIENT

DRUGS (2)
  1. GEMCITABINE HYDROCHLORIDE. [Suspect]
     Active Substance: GEMCITABINE HYDROCHLORIDE
     Indication: PANCREATIC CARCINOMA
     Dosage: UNK, 2/M
     Route: 065
  2. TEMSIROLIMUS. [Concomitant]
     Active Substance: TEMSIROLIMUS
     Indication: PANCREATIC CARCINOMA
     Dosage: UNK, WEEKLY (1/W)
     Route: 065

REACTIONS (2)
  - Opportunistic infection [Fatal]
  - Haematoma [Fatal]
